FAERS Safety Report 12119480 (Version 5)
Quarter: 2017Q4

REPORT INFORMATION
  Report Type: Report from Study
  Country: DE (occurrence: DE)
  Receive Date: 20160226
  Receipt Date: 20171114
  Transmission Date: 20180320
  Serious: Yes (Other)
  Sender: FDA-Public Use
  Company Number: DE-BAYER-2015-480357

PATIENT
  Age: 48 Year
  Sex: Female
  Weight: 63 kg

DRUGS (9)
  1. ZOLMITRIPTAN. [Concomitant]
     Active Substance: ZOLMITRIPTAN
     Dosage: UNK
  2. VITAMIN E [Concomitant]
     Active Substance: .ALPHA.-TOCOPHEROL
     Dosage: UNK
  3. VITAMIN D [Concomitant]
     Active Substance: CHOLECALCIFEROL
     Dosage: UNK
  4. VOLTAREN [DICLOFENAC] [Concomitant]
     Active Substance: DICLOFENAC SODIUM
     Dosage: UNK
  5. BETAFERON [Suspect]
     Active Substance: INTERFERON BETA-1B
     Indication: MULTIPLE SCLEROSIS
     Dosage: 250 ?G, QOD
     Route: 058
     Dates: start: 20060901
  6. CORTISONE [Concomitant]
     Active Substance: CORTISONE\HYDROCORTISONE
  7. VITAMIN C [Concomitant]
     Active Substance: ASCORBIC ACID
     Dosage: UNK
  8. OMEGA 3 [Concomitant]
     Active Substance: OMEGA-3 FATTY ACIDS
     Dosage: UNK
  9. MAGNESIUM [Concomitant]
     Active Substance: MAGNESIUM
     Dosage: UNK

REACTIONS (34)
  - Multiple sclerosis relapse [Recovering/Resolving]
  - Hypoaesthesia [Recovering/Resolving]
  - Hemianaesthesia [Recovering/Resolving]
  - Mood swings [Recovering/Resolving]
  - Gingivitis [Recovered/Resolved]
  - Multiple sclerosis relapse [Recovering/Resolving]
  - Dizziness [Not Recovered/Not Resolved]
  - Intervertebral disc protrusion [Unknown]
  - Hypoaesthesia [Unknown]
  - Breast induration [Recovered/Resolved]
  - Mastitis [Recovered/Resolved]
  - Cardiovascular disorder [None]
  - Migraine [Not Recovered/Not Resolved]
  - Fall [Unknown]
  - Gait disturbance [Unknown]
  - Speech disorder [Unknown]
  - Breast swelling [Recovered/Resolved]
  - Balance disorder [Recovering/Resolving]
  - Nipple inflammation [Recovered/Resolved]
  - Urticaria [Recovered/Resolved]
  - Muscle spasticity [Recovering/Resolving]
  - Multiple sclerosis relapse [Unknown]
  - Mood altered [Recovered/Resolved]
  - Gingivitis [Recovered/Resolved]
  - Gingival bleeding [None]
  - Stomatitis [Not Recovered/Not Resolved]
  - Bone marrow oedema [Recovering/Resolving]
  - Limb discomfort [Recovering/Resolving]
  - Fine motor skill dysfunction [None]
  - Limb discomfort [Unknown]
  - Back pain [None]
  - Noninfective gingivitis [None]
  - Gait disturbance [Not Recovered/Not Resolved]
  - Dizziness [Not Recovered/Not Resolved]

NARRATIVE: CASE EVENT DATE: 20141101
